FAERS Safety Report 12482163 (Version 2)
Quarter: 2016Q2

REPORT INFORMATION
  Report Type: Report from Study
  Country: BR (occurrence: BR)
  Receive Date: 20160620
  Receipt Date: 20160621
  Transmission Date: 20160815
  Serious: Yes (Life-Threatening)
  Sender: FDA-Public Use
  Company Number: PHHY2016BR083442

PATIENT
  Sex: Male
  Weight: 77 kg

DRUGS (4)
  1. SPIRIVA [Concomitant]
     Active Substance: TIOTROPIUM BROMIDE MONOHYDRATE
     Indication: EMPHYSEMA
     Dosage: 150 MG, BID
     Route: 055
  2. SEEBRI BREEZHALER [Suspect]
     Active Substance: GLYCOPYRROLATE
     Indication: EMPHYSEMA
     Dosage: 50 UG, QD
     Route: 055
  3. ONBREZ BREEZHALER [Suspect]
     Active Substance: INDACATEROL
     Indication: EMPHYSEMA
     Dosage: 150 MG, QD
     Route: 055
  4. CLONAZEPAM. [Suspect]
     Active Substance: CLONAZEPAM
     Indication: SLEEP DISORDER
     Dosage: 2 MG, BID
     Route: 048

REACTIONS (13)
  - Feeling abnormal [Unknown]
  - Emotional disorder [Unknown]
  - Retching [Recovering/Resolving]
  - Chills [Unknown]
  - Dyspnoea [Recovering/Resolving]
  - Dizziness [Recovering/Resolving]
  - Fatigue [Recovering/Resolving]
  - Nausea [Recovering/Resolving]
  - Fear [Unknown]
  - Insomnia [Unknown]
  - Malaise [Recovering/Resolving]
  - Drug withdrawal syndrome [Unknown]
  - Foreign body [Unknown]
